FAERS Safety Report 20993380 (Version 1)
Quarter: 2022Q2

REPORT INFORMATION
  Report Type: Spontaneous
  Country: US (occurrence: None)
  Receive Date: 20220621
  Receipt Date: 20220621
  Transmission Date: 20220721
  Serious: Yes (Other)
  Sender: FDA-Public Use
  Company Number: None

PATIENT
  Age: 69 Year
  Sex: Male
  Weight: 95.4 kg

DRUGS (17)
  1. MUPIROCIN [Suspect]
     Active Substance: MUPIROCIN
     Indication: Skin disorder
     Dosage: OTHER QUANTITY : 2 NOT SURE;?FREQUENCY : 3 TIMES A DAY;?
     Route: 061
     Dates: start: 20220604, end: 20220609
  2. LEVOTHYROXINE [Concomitant]
     Active Substance: LEVOTHYROXINE
  3. ELAVIL [Concomitant]
     Active Substance: AMITRIPTYLINE HYDROCHLORIDE
  4. LYRICA [Concomitant]
     Active Substance: PREGABALIN
  5. TRILEPTAL [Concomitant]
     Active Substance: OXCARBAZEPINE
  6. MIRTAZAPINE [Concomitant]
     Active Substance: MIRTAZAPINE
  7. ZETIA [Concomitant]
     Active Substance: EZETIMIBE
  8. ZOFRAN [Concomitant]
     Active Substance: ONDANSETRON HYDROCHLORIDE
  9. Myrolax [Concomitant]
  10. multi for men over 50 [Concomitant]
  11. VITAMIN D [Concomitant]
     Active Substance: VITAMIN D NOS
  12. PROBIOTICS NOS [Concomitant]
     Active Substance: PROBIOTICS NOS
  13. Preservision(Ared2) [Concomitant]
  14. omreprozole [Concomitant]
  15. high potency b complex [Concomitant]
  16. HERBALS [Concomitant]
     Active Substance: HERBALS
  17. ASPIRIN [Concomitant]
     Active Substance: ASPIRIN

REACTIONS (7)
  - Condition aggravated [None]
  - Oral discomfort [None]
  - Dyspepsia [None]
  - Heart rate increased [None]
  - Product formulation issue [None]
  - Accidental exposure to product [None]
  - Product quality issue [None]

NARRATIVE: CASE EVENT DATE: 20220605
